FAERS Safety Report 20911372 (Version 1)
Quarter: 2022Q2

REPORT INFORMATION
  Report Type: Spontaneous
  Country: US (occurrence: US)
  Receive Date: 20220603
  Receipt Date: 20220603
  Transmission Date: 20220721
  Serious: No
  Sender: FDA-Public Use
  Company Number: US-ELI_LILLY_AND_COMPANY-US202206000415

PATIENT
  Sex: Female

DRUGS (12)
  1. BASAGLAR [Suspect]
     Active Substance: INSULIN GLARGINE
     Indication: Product used for unknown indication
     Dosage: 8 U, EACH MORNING
     Route: 065
     Dates: start: 2018
  2. BASAGLAR [Suspect]
     Active Substance: INSULIN GLARGINE
     Indication: Product used for unknown indication
     Dosage: 8 U, EACH MORNING
     Route: 065
     Dates: start: 2018
  3. BASAGLAR [Suspect]
     Active Substance: INSULIN GLARGINE
     Dosage: 11 U, EACH EVENING
     Route: 065
     Dates: start: 2018
  4. BASAGLAR [Suspect]
     Active Substance: INSULIN GLARGINE
     Dosage: 11 U, EACH EVENING
     Route: 065
     Dates: start: 2018
  5. BASAGLAR [Suspect]
     Active Substance: INSULIN GLARGINE
     Dosage: UNK UNK, UNKNOWN
     Route: 065
  6. BASAGLAR [Suspect]
     Active Substance: INSULIN GLARGINE
     Dosage: UNK UNK, UNKNOWN
     Route: 065
  7. INSULIN LISPRO [Suspect]
     Active Substance: INSULIN LISPRO
     Indication: Product used for unknown indication
     Dosage: 8 U, EACH MORNING
     Route: 065
     Dates: start: 2018
  8. INSULIN LISPRO [Suspect]
     Active Substance: INSULIN LISPRO
     Dosage: 9 U, OTHER (AT LUNCH)
     Route: 065
     Dates: start: 2018
  9. INSULIN LISPRO [Suspect]
     Active Substance: INSULIN LISPRO
     Dosage: 11 U, EACH EVENING
     Route: 065
     Dates: start: 2018
  10. HUMALOG [Suspect]
     Active Substance: INSULIN LISPRO
     Indication: Product used for unknown indication
     Dosage: 8 U, EACH MORNING
     Route: 065
     Dates: start: 2012
  11. HUMALOG [Suspect]
     Active Substance: INSULIN LISPRO
     Dosage: 9 U, OTHER (AT LUNCH)
     Route: 065
     Dates: start: 2012
  12. HUMALOG [Suspect]
     Active Substance: INSULIN LISPRO
     Dosage: 12 U, EACH EVENING
     Route: 065
     Dates: start: 2012

REACTIONS (3)
  - Blood glucose increased [Unknown]
  - Pancreatic disorder [Unknown]
  - Inappropriate schedule of product administration [Unknown]
